FAERS Safety Report 7337010-0 (Version None)
Quarter: 2011Q1

REPORT INFORMATION
  Report Type: 
  Country: None (occurrence: None)
  Receive Date: 20110308
  Receipt Date: 20110228
  Transmission Date: 20110831
  Serious: Yes (Other)
  Sender: FDA-Public Use
  Company Number: US-BAYER-2011-019385

PATIENT
  Sex: Female
  Weight: 52 kg

DRUGS (2)
  1. METOPROLOL [Concomitant]
     Dosage: 1 DF, QD
     Route: 048
  2. ASPIRIN [Suspect]
     Indication: ISCHAEMIC HEART DISEASE PROPHYLAXIS
     Dosage: 2 DF, QD
     Dates: start: 20110216, end: 20110217

REACTIONS (2)
  - HAEMORRHAGE SUBCUTANEOUS [None]
  - URTICARIA [None]
